FAERS Safety Report 9293584 (Version 2)
Quarter: 2013Q2

REPORT INFORMATION
  Report Type: Spontaneous
  Country: US (occurrence: US)
  Receive Date: 20130516
  Receipt Date: 20130619
  Transmission Date: 20140414
  Serious: Yes (Other)
  Sender: FDA-Public Use
  Company Number: US-FRI-1000045164

PATIENT
  Age: 63 Year
  Sex: Female

DRUGS (6)
  1. DALIRESP [Suspect]
     Indication: BRONCHITIS CHRONIC
     Dosage: 500 MCG
     Route: 048
     Dates: start: 2011
  2. PRILOSEC [Concomitant]
     Dosage: 40 MG
     Route: 048
  3. LASIX [Concomitant]
     Indication: OEDEMA PERIPHERAL
     Dosage: 40 MG
     Route: 048
  4. PAXIL [Concomitant]
     Dosage: 40 MG
     Route: 048
  5. SYMBICORT [Concomitant]
     Indication: BRONCHITIS CHRONIC
     Dosage: 2 PUFFS TWICE DAILY
  6. COZAAR [Concomitant]
     Indication: HYPERTENSION

REACTIONS (2)
  - Haemoglobin decreased [Not Recovered/Not Resolved]
  - Blood iron decreased [Not Recovered/Not Resolved]
